FAERS Safety Report 21948836 (Version 1)
Quarter: 2023Q1

REPORT INFORMATION
  Report Type: Spontaneous
  Country: US (occurrence: US)
  Receive Date: 20230203
  Receipt Date: 20230203
  Transmission Date: 20230417
  Serious: No
  Sender: FDA-Public Use
  Company Number: US-AMGEN-USASP2023014998

PATIENT
  Sex: Female

DRUGS (1)
  1. PROLIA [Suspect]
     Active Substance: DENOSUMAB
     Indication: Prophylaxis
     Dosage: 60 MILLIGRAM, Q6MO
     Route: 065
     Dates: start: 202111, end: 202211

REACTIONS (3)
  - Muscle spasms [Not Recovered/Not Resolved]
  - Burning sensation [Not Recovered/Not Resolved]
  - Bone pain [Not Recovered/Not Resolved]
